FAERS Safety Report 8927175 (Version 4)
Quarter: 2013Q1

REPORT INFORMATION
  Report Type: Spontaneous
  Country: GB (occurrence: GB)
  Receive Date: 20121127
  Receipt Date: 20130107
  Transmission Date: 20140127
  Serious: Yes (Other)
  Sender: FDA-Public Use
  Company Number: GB-SANOFI-AVENTIS-2012SA085075

PATIENT
  Age: 77 Year
  Sex: Female

DRUGS (9)
  1. LANTUS SOLOSTAR [Suspect]
     Indication: DIABETES MELLITUS
     Dosage: DOSE:40 UNIT(S)
     Route: 058
     Dates: start: 2006
  2. SOLOSTAR [Suspect]
     Indication: DEVICE THERAPY
     Dates: start: 2004
  3. APIDRA [Concomitant]
     Indication: DIABETES MELLITUS
     Dosage: DOSE: 11/12 UNITS AM; 15 UNITS AFTER DINNER AND 8 UNITS AT NIGHT.
     Route: 058
     Dates: start: 2004
  4. LOSARTAN [Concomitant]
     Indication: HYPERTENSION
     Route: 048
  5. INDAPAMIDE [Concomitant]
     Indication: HYPERTENSION
     Route: 048
  6. ATORVASTATIN [Concomitant]
     Indication: BLOOD PRESSURE
     Route: 048
  7. THYROXINE SODIUM [Concomitant]
     Indication: HYPERTHYROIDISM
     Route: 048
  8. ATENOLOL [Concomitant]
     Indication: HYPERTENSION
     Route: 048
  9. LERCANIDIPINE [Concomitant]
     Indication: HYPERTENSION
     Route: 048
     Dates: start: 20090403

REACTIONS (4)
  - Vision blurred [Not Recovered/Not Resolved]
  - Pruritus [Not Recovered/Not Resolved]
  - Mass [Not Recovered/Not Resolved]
  - Local swelling [Not Recovered/Not Resolved]
